FAERS Safety Report 7564378-2 (Version None)
Quarter: 2011Q2

REPORT INFORMATION
  Report Type: 
  Country: None (occurrence: None)
  Receive Date: 20110622
  Receipt Date: 20110609
  Transmission Date: 20111010
  Serious: Yes (Other)
  Sender: FDA-Public Use
  Company Number: PHHY2011US53259

PATIENT
  Sex: Female

DRUGS (3)
  1. MONOPRIL [Concomitant]
  2. ZOMETA [Suspect]
  3. OXYCONTIN [Concomitant]

REACTIONS (5)
  - DIABETIC COMA [None]
  - TOOTH DISORDER [None]
  - DIABETES MELLITUS [None]
  - TOOTH LOSS [None]
  - OSTEONECROSIS OF JAW [None]
